FAERS Safety Report 10049621 (Version 3)
Quarter: 2014Q2

REPORT INFORMATION
  Report Type: Spontaneous
  Country: BE (occurrence: BE)
  Receive Date: 20140401
  Receipt Date: 20140527
  Transmission Date: 20141212
  Serious: Yes (Other)
  Sender: FDA-Public Use
  Company Number: PHHY2014BE038403

PATIENT
  Sex: Male

DRUGS (2)
  1. GLIVEC [Suspect]
     Indication: GASTROINTESTINAL STROMAL TUMOUR
     Dosage: 400 MG, QD
     Route: 048
     Dates: start: 2003
  2. BACTRIM [Concomitant]
     Dosage: UNK UKN, UNK

REACTIONS (8)
  - Lung disorder [Unknown]
  - Metastases to bone [Unknown]
  - Retroperitoneal mass [Unknown]
  - Bronchopneumonia [Unknown]
  - Gastrointestinal stromal tumour [Unknown]
  - Neoplasm recurrence [Unknown]
  - Plasma cell myeloma [Unknown]
  - Second primary malignancy [Unknown]
